FAERS Safety Report 16674121 (Version 1)
Quarter: 2019Q3

REPORT INFORMATION
  Report Type: Spontaneous
  Country: US (occurrence: US)
  Receive Date: 20190806
  Receipt Date: 20190806
  Transmission Date: 20191004
  Serious: No
  Sender: FDA-Public Use
  Company Number: US-TEVA-2019-US-1088180

PATIENT
  Sex: Male

DRUGS (1)
  1. TADAFIL TEVA [Suspect]
     Active Substance: TADALAFIL
     Dosage: TOOK 3 OF THESE PILLS , IMPRINTS AS OVAL, YELLOW/TEVA/3019
     Dates: start: 20190729

REACTIONS (1)
  - Drug ineffective [Unknown]
